FAERS Safety Report 8780979 (Version 3)
Quarter: 2012Q4

REPORT INFORMATION
  Report Type: 
  Country: US (occurrence: US)
  Receive Date: 20120913
  Receipt Date: 20121109
  Transmission Date: 20130627
  Serious: Yes (Other)
  Sender: FDA-Public Use
  Company Number: US-PFIZER INC-2012221437

PATIENT
  Age: 45 Year
  Sex: Female
  Weight: 64.9 kg

DRUGS (18)
  1. XANAX [Suspect]
     Indication: SHINGLES
     Dosage: 1 mg, 3x/day
  2. XANAX [Suspect]
     Indication: NERVE DAMAGE
  3. METHOTREXATE SODIUM [Suspect]
     Indication: MULTIPLE SCLEROSIS
     Dosage: UNK
  4. FAMVIR [Suspect]
     Indication: SHINGLES
     Dosage: 500 mg, daily
  5. COPAXONE [Suspect]
     Indication: MULTIPLE SCLEROSIS
     Dosage: UNK
     Route: 058
     Dates: start: 2002, end: 2003
  6. TYSABRI [Suspect]
     Indication: MULTIPLE SCLEROSIS
     Dosage: UNK
     Dates: end: 20100523
  7. NEURONTIN [Concomitant]
     Indication: ELECTRIC SHOCK SENSATION
     Dosage: 800 mg, 3x/day
  8. TRILEPTAL [Concomitant]
     Indication: SPASTICITY
     Dosage: 300 mg, 2x/day
  9. ZANAFLEX [Concomitant]
     Indication: MUSCLE TIGHTNESS
     Dosage: 4 mg, as needed
  10. ESTRADIOL [Concomitant]
     Indication: MENOPAUSE
     Dosage: UNK, daily
  11. FLUOXETINE [Concomitant]
     Indication: MULTIPLE SCLEROSIS
     Dosage: 20 mg, 2x/day
  12. TOPAMAX [Concomitant]
     Indication: MULTIPLE SCLEROSIS
     Dosage: 50 mg, 3x/day
  13. SANCTURA XR [Concomitant]
     Indication: BLADDER INCONTINENCE
     Dosage: 60 mg, daily
  14. BUMETANIDE [Concomitant]
     Indication: DIURETIC THERAPY
     Dosage: 2 mg, daily
  15. BUMETANIDE [Concomitant]
     Indication: BLOOD PRESSURE HIGH
  16. PROVIGIL [Concomitant]
     Indication: FATIGUE
     Dosage: 200 mg, daily
  17. NORCO [Concomitant]
     Dosage: hydrocodone bitartrate10/acetaminophen 325 mg,4x/day
  18. VITAMIN B12 [Concomitant]
     Dosage: 1 ml, weekly

REACTIONS (8)
  - Off label use [Not Recovered/Not Resolved]
  - Off label use [Recovered/Resolved]
  - Skin necrosis [Recovered/Resolved]
  - Herpes zoster [Recovered/Resolved]
  - Hypotension [Recovered/Resolved]
  - Hypersensitivity [Recovered/Resolved]
  - Urticaria [Unknown]
  - Insomnia [Not Recovered/Not Resolved]
